FAERS Safety Report 7928308-3 (Version None)
Quarter: 2011Q4

REPORT INFORMATION
  Report Type: 
  Country: None (occurrence: None)
  Receive Date: 20111118
  Receipt Date: 20111104
  Transmission Date: 20120403
  Serious: Yes (Hospitalization)
  Sender: FDA-Public Use
  Company Number: HU-NOVOPROD-338993

PATIENT

DRUGS (8)
  1. GLIMEPIRIDE [Concomitant]
     Dosage: 3 MG, QD
     Dates: end: 20110727
  2. GLIMEPIRIDE [Concomitant]
     Dosage: 2 MG, QD
     Dates: start: 20110824, end: 20110830
  3. INSULATARD NPH HUMAN [Suspect]
     Indication: TYPE 2 DIABETES MELLITUS
     Dosage: 28 U, QD
     Dates: start: 20110824, end: 20110829
  4. INSULATARD NPH HUMAN [Suspect]
     Dosage: 8 U, QD
     Dates: start: 20110831
  5. METFORMIN HCL [Concomitant]
     Dosage: 2550 MG, QD
     Dates: end: 20110727
  6. INSULATARD PENFILL [Suspect]
     Indication: TYPE 2 DIABETES MELLITUS
     Dosage: 36 IU, QD
     Dates: end: 20110727
  7. SAXAGLIPTIN [Suspect]
     Indication: TYPE 2 DIABETES MELLITUS
     Dosage: UNK
     Dates: start: 20100709
  8. METFORMIN HCL [Concomitant]
     Dosage: 2000 MG, QD
     Dates: start: 20110824

REACTIONS (3)
  - HYPOGLYCAEMIA [None]
  - HYPERTHYROIDISM [None]
  - PNEUMONIA [None]
